FAERS Safety Report 6151939-0 (Version None)
Quarter: 2009Q2

REPORT INFORMATION
  Report Type: 
  Country: None (occurrence: None)
  Receive Date: 20090408
  Receipt Date: 20090209
  Transmission Date: 20091009
  Serious: Yes (Other)
  Sender: FDA-Public Use
  Company Number: 8044456

PATIENT
  Age: 45 Year
  Sex: Male

DRUGS (8)
  1. PREDNISOLONE [Suspect]
     Indication: RESPIRATORY TRACT INFECTION
     Dosage: 6 MG /D
  2. PREDNISOLONE [Suspect]
     Indication: RESPIRATORY TRACT INFECTION
     Dosage: 70 MG /D;
  3. TACROLIMUS [Concomitant]
  4. AZATHIOPRINE [Concomitant]
  5. CREON [Concomitant]
  6. ESOMEPRAZOLE [Concomitant]
  7. PANTOPRAZOLE SODIUM [Concomitant]
  8. CALLCIUM CARBONATE [Concomitant]

REACTIONS (4)
  - HYPERPARATHYROIDISM SECONDARY [None]
  - HYPOCALCAEMIA [None]
  - HYPOMAGNESAEMIA [None]
  - VITAMIN D DEFICIENCY [None]
